FAERS Safety Report 21006820 (Version 4)
Quarter: 2022Q3

REPORT INFORMATION
  Report Type: Spontaneous
  Country: US (occurrence: US)
  Receive Date: 20220625
  Receipt Date: 20220916
  Transmission Date: 20221026
  Serious: No
  Sender: FDA-Public Use
  Company Number: US-TORRENT-00011916

PATIENT
  Age: 36 Year
  Sex: Female

DRUGS (1)
  1. DAPSONE [Suspect]
     Active Substance: DAPSONE
     Indication: Acne
     Dosage: ONCE A DAY
     Route: 065
     Dates: start: 20220614, end: 20220616

REACTIONS (2)
  - Burning sensation [Unknown]
  - Product quality issue [Unknown]

NARRATIVE: CASE EVENT DATE: 20220601
